FAERS Safety Report 15934887 (Version 1)
Quarter: 2019Q1

REPORT INFORMATION
  Report Type: Spontaneous
  Country: FR (occurrence: FR)
  Receive Date: 20190207
  Receipt Date: 20190207
  Transmission Date: 20190417
  Serious: Yes (Hospitalization)
  Sender: FDA-Public Use
  Company Number: FR-TEVA-2019-FR-1007205

PATIENT
  Age: 35 Year
  Sex: Male
  Weight: 80 kg

DRUGS (5)
  1. MINIRIN [Suspect]
     Active Substance: DESMOPRESSIN ACETATE
     Dosage: .1 MILLIGRAM DAILY;
     Route: 048
     Dates: start: 201104
  2. LYRICA [Suspect]
     Active Substance: PREGABALIN
     Dosage: 25 MILLIGRAM DAILY;
     Route: 048
     Dates: start: 201104
  3. TAMSULOSINE [Suspect]
     Active Substance: TAMSULOSIN HYDROCHLORIDE
     Dosage: .4 MILLIGRAM DAILY;
     Route: 048
     Dates: start: 2009
  4. TYSABRI [Suspect]
     Active Substance: NATALIZUMAB
     Indication: MULTIPLE SCLEROSIS
     Dosage: 51 PERFUSIONS
     Route: 041
     Dates: start: 200802, end: 20120518
  5. VESICARE [Suspect]
     Active Substance: SOLIFENACIN SUCCINATE
     Dosage: 5 MILLIGRAM DAILY;
     Route: 048

REACTIONS (1)
  - Pancreatitis acute [Recovered/Resolved]

NARRATIVE: CASE EVENT DATE: 20120528
